FAERS Safety Report 5584611-6 (Version None)
Quarter: 2008Q1

REPORT INFORMATION
  Report Type: 
  Country: None (occurrence: None)
  Receive Date: 20080103
  Receipt Date: 20071220
  Transmission Date: 20080703
  Serious: Yes (Other)
  Sender: FDA-Public Use
  Company Number: E3810-01493-SPO-JP

PATIENT
  Age: 48 Year
  Sex: Female

DRUGS (4)
  1. RABEPRAZOLE SODIUM [Suspect]
     Dosage: 20 MG, 2 IN 1 D, ORAL; 10 MG, 1 IN 1 D, ORAL
     Route: 048
     Dates: end: 20071129
  2. RABEPRAZOLE SODIUM [Suspect]
     Dosage: 20 MG, 2 IN 1 D, ORAL; 10 MG, 1 IN 1 D, ORAL
     Route: 048
     Dates: start: 20071130, end: 20071203
  3. PREDNISOLONE [Concomitant]
  4. PROGRAF [Concomitant]

REACTIONS (3)
  - ASTHENIA [None]
  - HOT FLUSH [None]
  - OEDEMA [None]
